FAERS Safety Report 9296804 (Version 1)
Quarter: 2013Q2

REPORT INFORMATION
  Report Type: Report from Study
  Country: AR (occurrence: AR)
  Receive Date: 20130517
  Receipt Date: 20130517
  Transmission Date: 20140414
  Serious: Yes (Other)
  Sender: FDA-Public Use
  Company Number: PHHY2013AR049415

PATIENT
  Sex: Female

DRUGS (4)
  1. DIOVAN [Suspect]
     Indication: HYPERTENSION
     Dosage: 160 MG, UNK
     Route: 048
  2. DIOVAN [Suspect]
     Dosage: 80 MG, UNK
     Route: 048
  3. DIOVAN [Suspect]
     Dosage: 40 MG, UNK
     Route: 048
     Dates: end: 2011
  4. CONCOR [Concomitant]
     Indication: CARDIAC DISORDER

REACTIONS (2)
  - Colon cancer metastatic [Recovering/Resolving]
  - Hypotension [Unknown]
